FAERS Safety Report 6614575-5 (Version None)
Quarter: 2010Q1

REPORT INFORMATION
  Report Type: 
  Country: None (occurrence: None)
  Receive Date: 20100304
  Receipt Date: 20100304
  Transmission Date: 20100710
  Serious: Yes (Life-Threatening, Other)
  Sender: FDA-Public Use
  Company Number: None

PATIENT
  Age: 21 Year
  Sex: Female
  Weight: 74.8435 kg

DRUGS (1)
  1. ZOLPIDEM TARTRATE [Suspect]
     Indication: INSOMNIA
     Dosage: ONE TABLET AT BEDTIME PO TWO NIGHTS
     Route: 048
     Dates: start: 20100222, end: 20100223

REACTIONS (3)
  - HALLUCINATION, VISUAL [None]
  - INSOMNIA [None]
  - SUICIDAL IDEATION [None]
